FAERS Safety Report 21315404 (Version 1)
Quarter: 2022Q3

REPORT INFORMATION
  Report Type: Spontaneous
  Country: US (occurrence: None)
  Receive Date: 20220909
  Receipt Date: 20220909
  Transmission Date: 20221027
  Serious: No
  Sender: FDA-Public Use
  Company Number: US-ARIS GLOBAL-202112-2239

PATIENT
  Sex: Female

DRUGS (12)
  1. OXERVATE [Suspect]
     Active Substance: CENEGERMIN-BKBJ
     Indication: Neurotrophic keratopathy
     Route: 047
     Dates: start: 20211101, end: 20211129
  2. OXERVATE [Suspect]
     Active Substance: CENEGERMIN-BKBJ
     Indication: Ophthalmic herpes simplex
  3. METFORMIN ER GASTRIC [Concomitant]
  4. PANTOPRAZOLE SODIUM [Concomitant]
     Active Substance: PANTOPRAZOLE SODIUM
  5. LEVOTHYROXINE [Concomitant]
     Active Substance: LEVOTHYROXINE
  6. OFEV [Concomitant]
     Active Substance: NINTEDANIB
  7. ZIRGAN [Concomitant]
     Active Substance: GANCICLOVIR
     Dates: start: 20210317, end: 20211202
  8. COSOPT [Concomitant]
     Active Substance: DORZOLAMIDE HYDROCHLORIDE\TIMOLOL MALEATE
     Dates: end: 20211202
  9. LOTEMAX [Concomitant]
     Active Substance: LOTEPREDNOL ETABONATE
     Dates: start: 20210329
  10. TRAVATAN [Concomitant]
     Active Substance: TRAVOPROST
  11. ERYTHROMYCIN [Concomitant]
     Active Substance: ERYTHROMYCIN
     Dates: start: 20211109, end: 20211202
  12. ACYCLOVIR [Concomitant]
     Active Substance: ACYCLOVIR
     Dates: end: 20211206

REACTIONS (1)
  - Eye pain [Unknown]
